FAERS Safety Report 4713982-5 (Version None)
Quarter: 2005Q3

REPORT INFORMATION
  Report Type: 
  Country: None (occurrence: None)
  Receive Date: 20050712
  Receipt Date: 20050624
  Transmission Date: 20060218
  Serious: Yes (Hospitalization, Other)
  Sender: FDA-Public Use
  Company Number: JP_050506664

PATIENT
  Age: 70 Year
  Sex: Female
  Weight: 57.6068 kg

DRUGS (10)
  1. GEMZAR [Suspect]
     Indication: PANCREATIC CARCINOMA RECURRENT
     Dosage: 1200 MG OTHER
     Dates: start: 20050407, end: 20050603
  2. GEMZAR [Suspect]
     Indication: PANCREATIC CARCINOMA STAGE II
     Dosage: 1200 MG OTHER
     Dates: start: 20050407, end: 20050603
  3. VOLTAREN-XR [Concomitant]
  4. DUROTEP (FENTANYL ) [Concomitant]
  5. PRIMPERAN ELIXIR [Concomitant]
  6. PROMAC (POLAPREZINC) [Concomitant]
  7. FOIPAN (CAMOSTAT MESILATE) [Concomitant]
  8. EXCELASE [Concomitant]
  9. MAGMITT (MAGNESIUM OXIDE) [Concomitant]
  10. ZOFRAN ZYDIS (ONDANSETRON) [Concomitant]

REACTIONS (8)
  - DYSGEUSIA [None]
  - METASTASES TO LIVER [None]
  - NAUSEA [None]
  - NEOPLASM PROGRESSION [None]
  - ORAL INTAKE REDUCED [None]
  - ORAL MUCOSAL DISCOLOURATION [None]
  - STOMATITIS [None]
  - VOMITING [None]
